FAERS Safety Report 8045309-8 (Version None)
Quarter: 2012Q1

REPORT INFORMATION
  Report Type: 
  Country: None (occurrence: None)
  Receive Date: 20120113
  Receipt Date: 20120111
  Transmission Date: 20120608
  Serious: Yes (Hospitalization)
  Sender: FDA-Public Use
  Company Number: DE-ROCHE-746193

PATIENT
  Sex: Female
  Weight: 66 kg

DRUGS (5)
  1. FLUOROURACIL [Suspect]
     Indication: BREAST CANCER
     Dosage: DOSE LEVEL: 600 MG/M2. DOSAGE FORM: VIALS. DATE OF LAST DOSE PRIOR TO SAE: 26 NOVEMBER 2010.
     Route: 042
  2. CYCLOPHOSPHAMIDE [Suspect]
     Indication: BREAST CANCER
     Dosage: DOSE LEVEL: 600 MG/M2. DOSAGE FORM: VIALS. DATE OF LAST DOSE PRIOR TO SAE: 26 NOV 2010.
     Route: 042
  3. HERCEPTIN [Suspect]
     Indication: BREAST CANCER
     Route: 065
  4. EPIRUBICIN HYDROCHLORIDE [Suspect]
     Indication: BREAST CANCER
     Dosage: DOSE LEVEL: 90 MG/M2. DOSAGE FORM: VIALS. DATE OF LAST DOSE PRIOR TO SAE: 26 NOV 2010.
     Route: 042
  5. AVASTIN [Suspect]
     Indication: BREAST CANCER
     Route: 065

REACTIONS (3)
  - DIZZINESS [None]
  - NAUSEA [None]
  - SYNCOPE [None]
